FAERS Safety Report 11567945 (Version 1)
Quarter: 2015Q3

REPORT INFORMATION
  Report Type: Spontaneous
  Country: US (occurrence: US)
  Receive Date: 20150916
  Receipt Date: 20150916
  Transmission Date: 20151125
  Serious: No
  Sender: FDA-Public Use
  Company Number: US-ELI_LILLY_AND_COMPANY-US200908001212

PATIENT
  Age: 87 Year
  Sex: Female

DRUGS (4)
  1. CITRICAL [Concomitant]
     Active Substance: CALCIUM CITRATE
     Dosage: 4 D/F, DAILY (1/D)
  2. VITAMIN D [Concomitant]
     Active Substance: CHOLECALCIFEROL
  3. FORTEO [Suspect]
     Active Substance: TERIPARATIDE
  4. CITRICAL [Concomitant]
     Active Substance: CALCIUM CITRATE
     Dosage: 6 D/F, DAILY (1/D)

REACTIONS (3)
  - Spinal compression fracture [Unknown]
  - Depressed level of consciousness [Recovering/Resolving]
  - Regurgitation [Recovered/Resolved]

NARRATIVE: CASE EVENT DATE: 200902
